FAERS Safety Report 16899932 (Version 1)
Quarter: 2019Q4

REPORT INFORMATION
  Report Type: Spontaneous
  Country: US (occurrence: US)
  Receive Date: 20190815
  Receipt Date: 20190815
  Transmission Date: 20200122
  Serious: No
  Sender: FDA-Public Use
  Company Number: None

PATIENT
  Age: 73 Year
  Sex: Female

DRUGS (7)
  1. VITAMIN C [Concomitant]
     Active Substance: ASCORBIC ACID
  2. PRAVASTATIN. [Concomitant]
     Active Substance: PRAVASTATIN
  3. ASPIRIN 80MG [Concomitant]
  4. PROLIA [Suspect]
     Active Substance: DENOSUMAB
  5. CALCIUM 600MG + VIT D [Concomitant]
  6. PANTOPRAZOLE [Concomitant]
     Active Substance: PANTOPRAZOLE
  7. VITAMINS [Concomitant]
     Active Substance: VITAMINS

REACTIONS (2)
  - Pain in extremity [None]
  - Drug hypersensitivity [None]

NARRATIVE: CASE EVENT DATE: 20190503
